FAERS Safety Report 7564235-1 (Version None)
Quarter: 2011Q2

REPORT INFORMATION
  Report Type: 
  Country: None (occurrence: None)
  Receive Date: 20110622
  Receipt Date: 20110414
  Transmission Date: 20111010
  Serious: No
  Sender: FDA-Public Use
  Company Number: US-ALLERGAN-1105242US

PATIENT
  Age: 70 Year
  Sex: Female

DRUGS (4)
  1. TIMOLOL MALEATE [Concomitant]
     Indication: GLAUCOMA
     Dosage: 1 GTT, QAM
     Route: 047
  2. LUMIGAN [Suspect]
     Indication: GLAUCOMA
     Dosage: 1 GTT, QPM
     Route: 047
  3. RESTASIS [Concomitant]
     Indication: DRY EYE
     Dosage: 1 GTT, BID
     Route: 047
  4. REFRESH CLASSIC [Suspect]
     Indication: DRY EYE
     Dosage: 1 GTT, Q1HR
     Route: 047
     Dates: start: 20110201

REACTIONS (4)
  - GLARE [None]
  - EYE PAIN [None]
  - EYE IRRITATION [None]
  - ASTHENOPIA [None]
